FAERS Safety Report 4728772-7 (Version None)
Quarter: 2005Q3

REPORT INFORMATION
  Report Type: 
  Country: None (occurrence: None)
  Receive Date: 20050729
  Receipt Date: 20050721
  Transmission Date: 20060218
  Serious: Yes (Hospitalization)
  Sender: FDA-Public Use
  Company Number: FRPFM-20050075

PATIENT
  Age: 39 Year
  Sex: Female

DRUGS (5)
  1. CIBLOR [Suspect]
     Route: 048
     Dates: start: 20050101, end: 20050101
  2. ACETAMINOPHEN [Concomitant]
  3. MEDROL [Concomitant]
     Indication: ASTHMA
  4. MUCOMYST [Concomitant]
     Indication: ASTHMA
  5. VENTOLIN [Concomitant]
     Indication: ASTHMA

REACTIONS (3)
  - DIARRHOEA [None]
  - GASTROINTESTINAL CANDIDIASIS [None]
  - WEIGHT DECREASED [None]
